FAERS Safety Report 9385635 (Version 1)
Quarter: 2013Q3

REPORT INFORMATION
  Report Type: Spontaneous
  Country: FR (occurrence: FR)
  Receive Date: 20130705
  Receipt Date: 20130705
  Transmission Date: 20140515
  Serious: Yes (Hospitalization)
  Sender: FDA-Public Use
  Company Number: FR-GLAXOSMITHKLINE-B0902959A

PATIENT
  Age: 49 Year
  Sex: Female

DRUGS (3)
  1. AZANTAC [Suspect]
     Indication: PREMEDICATION
     Dosage: 25MG SINGLE DOSE
     Route: 042
     Dates: start: 20130215, end: 20130215
  2. METHYLPREDNISOLONE [Concomitant]
     Indication: PREMEDICATION
     Dosage: 60MG SINGLE DOSE
     Route: 042
     Dates: start: 20130215, end: 20130215
  3. POLARAMINE [Concomitant]
     Indication: PREMEDICATION
     Dosage: 5MG SINGLE DOSE
     Route: 042
     Dates: start: 20130215, end: 20130215

REACTIONS (4)
  - Anaphylactic shock [Recovered/Resolved]
  - Vomiting [Recovered/Resolved]
  - Hypotension [Recovered/Resolved]
  - Skin reaction [Recovered/Resolved]
